FAERS Safety Report 6038599-4 (Version None)
Quarter: 2009Q1

REPORT INFORMATION
  Report Type: 
  Country: None (occurrence: None)
  Receive Date: 20090115
  Receipt Date: 20090109
  Transmission Date: 20090719
  Serious: Yes (Hospitalization)
  Sender: FDA-Public Use
  Company Number: B0553963A

PATIENT
  Age: 47 Year
  Sex: Female

DRUGS (2)
  1. AMOXICILLIN + CLAVULANATE POTASSIUM [Suspect]
     Indication: TOOTHACHE
     Dosage: 2G PER DAY
     Route: 048
     Dates: start: 20081221, end: 20081221
  2. DIAMICRON [Concomitant]
     Route: 065

REACTIONS (3)
  - DYSPNOEA [None]
  - OEDEMA [None]
  - RASH PRURITIC [None]
